FAERS Safety Report 23724758 (Version 1)
Quarter: 2024Q2

REPORT INFORMATION
  Report Type: Spontaneous
  Country: US (occurrence: US)
  Receive Date: 20240409
  Receipt Date: 20240409
  Transmission Date: 20240715
  Serious: Yes (Hospitalization)
  Sender: FDA-Public Use
  Company Number: US-BRISTOL-MYERS SQUIBB COMPANY-2024-055629

PATIENT
  Age: 72 Year
  Sex: Male
  Weight: 96.62 kg

DRUGS (1)
  1. REVLIMID [Suspect]
     Active Substance: LENALIDOMIDE
     Indication: Primary amyloidosis
     Dosage: 3WKSON/1WKOFF
     Route: 048
     Dates: start: 20240201

REACTIONS (2)
  - Atrial flutter [Unknown]
  - Off label use [Unknown]
